FAERS Safety Report 6893542-0 (Version None)
Quarter: 2010Q3

REPORT INFORMATION
  Report Type: 
  Country: None (occurrence: None)
  Receive Date: 20100731
  Receipt Date: 20091009
  Transmission Date: 20110219
  Serious: No
  Sender: FDA-Public Use
  Company Number: US-PFIZER INC-2009258842

PATIENT
  Sex: Male
  Weight: 109 kg

DRUGS (2)
  1. LIPITOR [Suspect]
     Indication: BLOOD CHOLESTEROL INCREASED
     Dosage: DAILY
     Route: 048
  2. LIPITOR [Suspect]
     Indication: CORONARY ARTERY DISEASE

REACTIONS (3)
  - BLOOD TRIGLYCERIDES INCREASED [None]
  - MUSCLE SPASMS [None]
  - MYALGIA [None]
